FAERS Safety Report 14878703 (Version 1)
Quarter: 2018Q2

REPORT INFORMATION
  Report Type: Spontaneous
  Country: US (occurrence: US)
  Receive Date: 20180511
  Receipt Date: 20180511
  Transmission Date: 20180711
  Serious: No
  Sender: FDA-Public Use
  Company Number: US-ASTRAZENECA-2018SE59982

PATIENT
  Age: 24265 Day
  Sex: Male
  Weight: 141.7 kg

DRUGS (14)
  1. FASENRA [Suspect]
     Active Substance: BENRALIZUMAB
     Route: 058
     Dates: start: 20180501
  2. PREDNISONE. [Concomitant]
     Active Substance: PREDNISONE
     Dates: start: 20180122
  3. FLUTICASONE. [Concomitant]
     Active Substance: FLUTICASONE
     Route: 055
     Dates: start: 20180106
  4. FLONASE [Concomitant]
     Active Substance: FLUTICASONE PROPIONATE
     Route: 045
     Dates: start: 20171003
  5. AZITHROMYCIN ANHYDROUS. [Concomitant]
     Active Substance: AZITHROMYCIN ANHYDROUS
     Route: 048
     Dates: start: 20180106
  6. OMEPRAZOLE. [Suspect]
     Active Substance: OMEPRAZOLE
     Route: 048
     Dates: start: 20171002
  7. AMBIEN [Concomitant]
     Active Substance: ZOLPIDEM TARTRATE
     Dates: start: 20180227
  8. SINGULAIR [Concomitant]
     Active Substance: MONTELUKAST SODIUM
     Route: 048
     Dates: start: 20171002
  9. ALBUTEROL PROVENTIL HFA [Concomitant]
     Route: 055
     Dates: start: 20171002
  10. XYLOCAINE [Concomitant]
     Active Substance: LIDOCAINE HYDROCHLORIDE
     Dosage: 5.0% AS REQUIRED
     Dates: start: 20170428
  11. TRIAMTERENE AND HYDROCHLOROTHIAZIDE [Concomitant]
     Active Substance: HYDROCHLOROTHIAZIDE\TRIAMTERENE
     Route: 048
     Dates: start: 20110308
  12. VITAMIN D3 [Concomitant]
     Active Substance: CHOLECALCIFEROL
  13. MULTIVITAMIN [Concomitant]
     Active Substance: VITAMINS
  14. ZANTAC [Concomitant]
     Active Substance: RANITIDINE HYDROCHLORIDE

REACTIONS (1)
  - Dyspepsia [Unknown]

NARRATIVE: CASE EVENT DATE: 20180501
